FAERS Safety Report 4650991-9 (Version None)
Quarter: 2005Q2

REPORT INFORMATION
  Report Type: 
  Country: None (occurrence: None)
  Receive Date: 20050429
  Receipt Date: 20050422
  Transmission Date: 20051028
  Serious: No
  Sender: FDA-Public Use
  Company Number: 05H-163-0298312-00

PATIENT
  Age: 75 Year
  Sex: Male

DRUGS (2)
  1. DEXTRAN 40 10% IN NORMAL SALINE 0.9% [Suspect]
     Indication: COAGULOPATHY
     Dosage: 50 CC, PER HOUR, INTRAVENOUS
     Route: 042
     Dates: start: 20050405, end: 20050405
  2. DEXTRAN 40 10% IN NORMAL SALINE 0.9% [Suspect]

REACTIONS (5)
  - BACK PAIN [None]
  - DYSPNOEA [None]
  - ERYTHEMA [None]
  - HYPERSENSITIVITY [None]
  - SPEECH DISORDER [None]
